FAERS Safety Report 4969187-6 (Version None)
Quarter: 2006Q2

REPORT INFORMATION
  Report Type: 
  Country: None (occurrence: None)
  Receive Date: 20060411
  Receipt Date: 20060105
  Transmission Date: 20061013
  Serious: Yes (Hospitalization)
  Sender: FDA-Public Use
  Company Number: US-BRISTOL-MYERS SQUIBB COMPANY-13237409

PATIENT
  Age: 46 Year
  Sex: Male

DRUGS (3)
  1. TAXOL [Suspect]
     Indication: NEOPLASM MALIGNANT
     Route: 042
  2. CARBOPLATIN [Suspect]
     Indication: NEOPLASM MALIGNANT
     Route: 042
  3. CELEBREX [Concomitant]
     Indication: NEOPLASM MALIGNANT

REACTIONS (1)
  - PYREXIA [None]
